FAERS Safety Report 24852462 (Version 1)
Quarter: 2025Q1

REPORT INFORMATION
  Report Type: Report from Study
  Country: US (occurrence: US)
  Receive Date: 20250116
  Receipt Date: 20250116
  Transmission Date: 20250409
  Serious: Yes (Hospitalization)
  Sender: ALEXION PHARMACEUTICALS
  Company Number: US-AstraZeneca-CH-00784734A

PATIENT
  Weight: 77 kg

DRUGS (4)
  1. SELUMETINIB [Suspect]
     Active Substance: SELUMETINIB
     Indication: Neurofibromatosis
  2. SELUMETINIB [Suspect]
     Active Substance: SELUMETINIB
     Route: 048
  3. SELUMETINIB [Suspect]
     Active Substance: SELUMETINIB
  4. SELUMETINIB [Suspect]
     Active Substance: SELUMETINIB
     Route: 048

REACTIONS (1)
  - Infection [Unknown]
